FAERS Safety Report 15686766 (Version 1)
Quarter: 2018Q4

REPORT INFORMATION
  Report Type: Report from Study
  Country: CL (occurrence: CL)
  Receive Date: 20181204
  Receipt Date: 20181204
  Transmission Date: 20190205
  Serious: Yes (Death)
  Sender: FDA-Public Use
  Company Number: CL-ACTELION-A-NJ2018-183034

PATIENT
  Age: 40 Year
  Sex: Female

DRUGS (1)
  1. VENTAVIS [Suspect]
     Active Substance: ILOPROST
     Indication: PULMONARY HYPERTENSION
     Dosage: 2.5 MCG, Q4HRS
     Route: 055
     Dates: start: 20181019, end: 20181024

REACTIONS (1)
  - Death [Fatal]

NARRATIVE: CASE EVENT DATE: 20181024
